FAERS Safety Report 8541543-9 (Version None)
Quarter: 2012Q3

REPORT INFORMATION
  Report Type: 
  Country: None (occurrence: None)
  Receive Date: 20120726
  Receipt Date: 20120418
  Transmission Date: 20120928
  Serious: No
  Sender: FDA-Public Use
  Company Number: US-MUTUAL PHARMACEUTICAL COMPANY, INC.-CLCY20120066

PATIENT
  Age: 82 Year
  Sex: Female

DRUGS (1)
  1. COLCRYS [Suspect]
     Indication: CHONDROCALCINOSIS PYROPHOSPHATE
     Route: 065

REACTIONS (1)
  - DIARRHOEA [None]
